FAERS Safety Report 11877275 (Version 8)
Quarter: 2016Q2

REPORT INFORMATION
  Report Type: Spontaneous
  Country: US (occurrence: US)
  Receive Date: 20151229
  Receipt Date: 20160510
  Transmission Date: 20160815
  Serious: Yes (Hospitalization)
  Sender: FDA-Public Use
  Company Number: US-ACTELION-A-NJ2015-129119

PATIENT
  Age: 64 Year
  Sex: Female

DRUGS (10)
  1. ZOCOR [Concomitant]
     Active Substance: SIMVASTATIN
     Dosage: 40 MG, UNK
  2. ZOLOFT [Concomitant]
     Active Substance: SERTRALINE HYDROCHLORIDE
     Dosage: 200 MG, TID
  3. VELETRI [Suspect]
     Active Substance: EPOPROSTENOL
     Indication: PULMONARY ARTERIAL HYPERTENSION
     Dosage: 3 NG/KG, PER MIN
     Route: 042
     Dates: start: 20150221
  4. PIOGLITAZON [Concomitant]
     Dosage: 45 MG, QD
  5. SIMVASTATIN. [Concomitant]
     Active Substance: SIMVASTATIN
     Dosage: 40 MG, UNK
  6. ALBUTEROL. [Concomitant]
     Active Substance: ALBUTEROL
  7. SPIRIVA [Concomitant]
     Active Substance: TIOTROPIUM BROMIDE MONOHYDRATE
     Dosage: UNK
  8. FUROSEMIDE. [Concomitant]
     Active Substance: FUROSEMIDE
     Dosage: UNK, PRN
  9. INSULIN GLARGINE [Concomitant]
     Active Substance: INSULIN GLARGINE
     Dosage: UNK
  10. REVATIO [Concomitant]
     Active Substance: SILDENAFIL CITRATE
     Dosage: 20 MG, TID

REACTIONS (8)
  - Chronic obstructive pulmonary disease [Recovering/Resolving]
  - Dyspnoea [Unknown]
  - Dyspnoea exertional [Unknown]
  - Palpitations [Unknown]
  - Pneumonia [Recovering/Resolving]
  - No therapeutic response [Unknown]
  - Respiratory failure [Unknown]
  - Disease progression [Unknown]

NARRATIVE: CASE EVENT DATE: 20151216
